FAERS Safety Report 21424228 (Version 1)
Quarter: 2022Q4

REPORT INFORMATION
  Report Type: Report from Study
  Country: US (occurrence: US)
  Receive Date: 20221007
  Receipt Date: 20221007
  Transmission Date: 20230113
  Serious: Yes (Hospitalization)
  Sender: FDA-Public Use
  Company Number: US-TAKEDA-2022TUS071984

PATIENT
  Age: 9 Year
  Sex: Male
  Weight: 21 kg

DRUGS (12)
  1. TEDUGLUTIDE [Suspect]
     Active Substance: TEDUGLUTIDE
     Indication: Short-bowel syndrome
     Route: 042
  2. TEDUGLUTIDE [Suspect]
     Active Substance: TEDUGLUTIDE
     Indication: Short-bowel syndrome
     Route: 042
  3. TEDUGLUTIDE [Suspect]
     Active Substance: TEDUGLUTIDE
     Indication: Short-bowel syndrome
     Route: 042
  4. TEDUGLUTIDE [Suspect]
     Active Substance: TEDUGLUTIDE
     Indication: Short-bowel syndrome
     Route: 042
  5. CATHFLO ACTIVASE [Concomitant]
     Active Substance: ALTEPLASE
     Indication: Catheter placement
     Dosage: 1 MILLIGRAM
     Route: 050
     Dates: start: 20220923, end: 20220923
  6. ONDANSETRON [Concomitant]
     Active Substance: ONDANSETRON
     Indication: Nausea
     Dosage: 4.32 MILLIGRAM
     Route: 050
     Dates: start: 20220923, end: 20220923
  7. ONDANSETRON [Concomitant]
     Active Substance: ONDANSETRON
     Dosage: 4 MILLIGRAM
     Route: 050
     Dates: start: 20220924, end: 20220926
  8. HYDROCHLORIC ACID [Concomitant]
     Active Substance: HYDROCHLORIC ACID
     Indication: Catheter placement
     Dosage: 1 MILLILITER
     Route: 050
     Dates: start: 20220923, end: 20220923
  9. LANSOPRAZOLE [Concomitant]
     Active Substance: LANSOPRAZOLE
     Indication: Gastrooesophageal reflux disease
     Dosage: 15 MILLIGRAM, QD
     Route: 048
     Dates: start: 20220923, end: 20220926
  10. CHOLESTYRAMINE [Concomitant]
     Active Substance: CHOLESTYRAMINE
     Indication: Diarrhoea
     Dosage: 10 MILLILITER, BID
     Route: 050
     Dates: start: 20220923, end: 20220924
  11. CHOLESTYRAMINE [Concomitant]
     Active Substance: CHOLESTYRAMINE
     Dosage: 10 MILLILITER, BID
     Route: 050
     Dates: start: 20220924, end: 20220926
  12. HEPARIN [Concomitant]
     Active Substance: HEPARIN SODIUM
     Indication: Catheter management
     Dosage: 10 UNK
     Route: 042
     Dates: start: 20220924, end: 20220926

REACTIONS (2)
  - Acidosis hyperchloraemic [Recovered/Resolved]
  - Device malfunction [Recovered/Resolved]

NARRATIVE: CASE EVENT DATE: 20220922
